FAERS Safety Report 13058857 (Version 6)
Quarter: 2017Q3

REPORT INFORMATION
  Report Type: Report from Study
  Country: US (occurrence: US)
  Receive Date: 20161223
  Receipt Date: 20170728
  Transmission Date: 20171127
  Serious: Yes (Hospitalization, Other)
  Sender: FDA-Public Use
  Company Number: PHEH2016US033508

PATIENT
  Age: 68 Year
  Sex: Male

DRUGS (1)
  1. SANDOSTATIN LAR DEPOT [Suspect]
     Active Substance: OCTREOTIDE ACETATE
     Indication: DIARRHOEA
     Dosage: 20 MG, QMO
     Route: 030

REACTIONS (9)
  - Muscular weakness [Unknown]
  - Gastric cancer [Unknown]
  - Diarrhoea [Unknown]
  - Speech disorder [Unknown]
  - Product use in unapproved indication [Unknown]
  - Cerebrovascular accident [Unknown]
  - Genital haemorrhage [Unknown]
  - Dehydration [Unknown]
  - Malaise [Unknown]

NARRATIVE: CASE EVENT DATE: 20161025
